FAERS Safety Report 9718970 (Version 1)
Quarter: 2013Q4

REPORT INFORMATION
  Report Type: Spontaneous
  Country: US (occurrence: None)
  Receive Date: 20131125
  Receipt Date: 20131125
  Transmission Date: 20140711
  Serious: Yes (Life-Threatening)
  Sender: FDA-Public Use
  Company Number: SYM-2013-13071

PATIENT
  Sex: 0

DRUGS (2)
  1. XENAZINE (TETRABENAZINE) [Suspect]
     Indication: CHOREA
     Dosage: 12.5 MG, 1 IN 1 D, ORAL
     Route: 048
  2. METHADONE (METHADONE) (METHADONE) [Concomitant]

REACTIONS (2)
  - Cardio-respiratory arrest [None]
  - Overdose [None]
